FAERS Safety Report 6898072-8 (Version None)
Quarter: 2010Q3

REPORT INFORMATION
  Report Type: 
  Country: None (occurrence: None)
  Receive Date: 20100802
  Receipt Date: 20100723
  Transmission Date: 20110219
  Serious: Yes (Hospitalization)
  Sender: FDA-Public Use
  Company Number: FR-ABBOTT-09P-056-0599931-00

PATIENT
  Sex: Female
  Weight: 60 kg

DRUGS (3)
  1. KALETRA [Suspect]
     Indication: HIV INFECTION
     Dates: end: 20090915
  2. KALETRA [Suspect]
     Dosage: SOFT GELATIN CAPSULES
     Dates: start: 20020101
  3. TRUVADA [Suspect]
     Indication: HIV INFECTION
     Dates: start: 20020101

REACTIONS (3)
  - AXONAL NEUROPATHY [None]
  - PERIPHERAL SENSORY NEUROPATHY [None]
  - POLYNEUROPATHY [None]
